FAERS Safety Report 12473151 (Version 1)
Quarter: 2016Q2

REPORT INFORMATION
  Report Type: Other
  Country: FR (occurrence: FR)
  Receive Date: 20160616
  Receipt Date: 20160616
  Transmission Date: 20160815
  Serious: Yes (Other)
  Sender: FDA-Public Use
  Company Number: FR-CONCORDIA PHARMACEUTICALS INC.-CO-PL-FR-2016-275

PATIENT
  Age: 61 Year
  Sex: Female

DRUGS (2)
  1. PREDNISONE. [Concomitant]
     Active Substance: PREDNISONE
  2. PLAQUENIL [Suspect]
     Active Substance: HYDROXYCHLOROQUINE SULFATE
     Indication: SYSTEMIC LUPUS ERYTHEMATOSUS
     Route: 065

REACTIONS (8)
  - Troponin increased [None]
  - Biopsy heart abnormal [None]
  - Cardiac failure [Unknown]
  - Nuclear magnetic resonance imaging abnormal [None]
  - Dyspnoea [None]
  - Left ventricular hypertrophy [None]
  - Chest pain [None]
  - Cardiomyopathy [Unknown]
